FAERS Safety Report 12851208 (Version 3)
Quarter: 2016Q4

REPORT INFORMATION
  Report Type: Report from Study
  Country: None (occurrence: IL)
  Receive Date: 20161015
  Receipt Date: 20161116
  Transmission Date: 20170207
  Serious: Yes (Other)
  Sender: FDA-Public Use
  Company Number: IL-ABBVIE-16K-082-1746916-00

PATIENT
  Age: 34 Year
  Sex: Female

DRUGS (1)
  1. HUMIRA [Suspect]
     Active Substance: ADALIMUMAB
     Indication: AXIAL SPONDYLOARTHRITIS
     Route: 058
     Dates: start: 20160927

REACTIONS (18)
  - Cough [Unknown]
  - Pain [Not Recovered/Not Resolved]
  - Productive cough [Not Recovered/Not Resolved]
  - Injection site pain [Recovered/Resolved]
  - Asthma [Unknown]
  - Wheezing [Not Recovered/Not Resolved]
  - Burning sensation [Recovered/Resolved]
  - Injection site erythema [Unknown]
  - Nasopharyngitis [Unknown]
  - Wheezing [Recovered/Resolved]
  - Injection site rash [Unknown]
  - Chest pain [Not Recovered/Not Resolved]
  - Diplegia [Recovered/Resolved]
  - Back pain [Recovered/Resolved]
  - Oropharyngeal pain [Not Recovered/Not Resolved]
  - Sacroiliitis [Not Recovered/Not Resolved]
  - Injection site discolouration [Not Recovered/Not Resolved]
  - Dyspnoea [Unknown]

NARRATIVE: CASE EVENT DATE: 2016
